FAERS Safety Report 14570465 (Version 2)
Quarter: 2018Q1

REPORT INFORMATION
  Report Type: Spontaneous
  Country: US (occurrence: US)
  Receive Date: 20180226
  Receipt Date: 20180302
  Transmission Date: 20180509
  Serious: No
  Sender: FDA-Public Use
  Company Number: US-009507513-1802USA009872

PATIENT
  Age: 36 Year
  Sex: Female
  Weight: 156.8 kg

DRUGS (2)
  1. NORGESTIMATE [Concomitant]
     Active Substance: NORGESTIMATE
  2. NEXPLANON [Suspect]
     Active Substance: ETONOGESTREL
     Indication: CONTRACEPTION
     Dosage: 1 DF, EVERY 3 YEARS LEFT ARM
     Route: 059
     Dates: start: 20150415

REACTIONS (2)
  - Vaginal haemorrhage [Recovered/Resolved]
  - Menorrhagia [Unknown]

NARRATIVE: CASE EVENT DATE: 201711
